FAERS Safety Report 9370122 (Version 1)
Quarter: 2013Q2

REPORT INFORMATION
  Report Type: Spontaneous
  Country: GB (occurrence: GB)
  Receive Date: 20130626
  Receipt Date: 20130626
  Transmission Date: 20140414
  Serious: Yes (Other)
  Sender: FDA-Public Use
  Company Number: PHHY2013GB063917

PATIENT
  Age: 56 Year
  Sex: Female

DRUGS (4)
  1. RISPERIDONE [Suspect]
     Indication: SCHIZOPHRENIA
     Dosage: 4 MG, UNK
     Route: 048
     Dates: start: 20130409
  2. RISPERIDONE [Suspect]
     Dosage: 6 MG, UNK
     Route: 048
     Dates: start: 20130523
  3. XEPLION//PALIPERIDONE [Suspect]
     Indication: SCHIZOPHRENIA
     Dosage: 100 MG, UNK
     Route: 030
     Dates: start: 20130502
  4. XEPLION//PALIPERIDONE [Suspect]
     Dosage: 50 MG, UNK
     Route: 030
     Dates: start: 20130509

REACTIONS (6)
  - Renal impairment [Recovering/Resolving]
  - Hypokalaemia [Recovering/Resolving]
  - Blood prolactin increased [Not Recovered/Not Resolved]
  - Drug dose omission [Unknown]
  - Incorrect dose administered [Unknown]
  - Mental impairment [Unknown]
